FAERS Safety Report 5213095-2 (Version None)
Quarter: 2007Q1

REPORT INFORMATION
  Report Type: 
  Country: None (occurrence: None)
  Receive Date: 20070119
  Receipt Date: 20070110
  Transmission Date: 20070707
  Serious: Yes (Other)
  Sender: FDA-Public Use
  Company Number: US-AMGEN-STX206461

PATIENT
  Sex: Female

DRUGS (1)
  1. ENBREL [Suspect]
     Indication: POLYCHONDRITIS
     Route: 065
     Dates: start: 20021204, end: 20040801

REACTIONS (1)
  - CARDIAC FAILURE [None]
